FAERS Safety Report 6478851-1 (Version None)
Quarter: 2009Q4

REPORT INFORMATION
  Report Type: 
  Country: None (occurrence: None)
  Receive Date: 20091207
  Receipt Date: 20091202
  Transmission Date: 20100525
  Serious: Yes (Life-Threatening, Hospitalization)
  Sender: FDA-Public Use
  Company Number: US-SANOFI-AVENTIS-2009SA006637

PATIENT
  Age: 86 Year
  Sex: Male

DRUGS (3)
  1. PLAVIX [Suspect]
     Route: 048
  2. ASPIRIN [Suspect]
     Route: 048
  3. ADENOSINE [Concomitant]
     Indication: PERCUTANEOUS CORONARY INTERVENTION
     Route: 042
     Dates: start: 20091021, end: 20091021

REACTIONS (1)
  - SICK SINUS SYNDROME [None]
